FAERS Safety Report 7487473-5 (Version None)
Quarter: 2011Q2

REPORT INFORMATION
  Report Type: 
  Country: None (occurrence: None)
  Receive Date: 20110510
  Receipt Date: 20100727
  Transmission Date: 20111010
  Serious: Yes (Hospitalization)
  Sender: FDA-Public Use
  Company Number: GB-021186

PATIENT
  Age: 80 Year
  Sex: Male
  Weight: 72.2 kg

DRUGS (4)
  1. (OFATUMUMAB) [Suspect]
     Indication: CHRONIC LYMPHOCYTIC LEUKAEMIA
     Dosage: 300MG DAY 1, 1000MG DAY 8 FOLLOWED BY 1000MG EVERY 28 DAYS INTRAVENOUS
     Route: 042
     Dates: start: 20100609
  2. DILTIAZEM [Concomitant]
  3. (CHLORAMBUCIL) [Suspect]
     Indication: CHRONIC LYMPHOCYTIC LEUKAEMIA
     Dosage: TABLET 20 MGM2 DAYS 1-7 EVERY 28* DAYS ORAL
     Route: 048
     Dates: start: 20100609
  4. RAMIPRIL [Concomitant]

REACTIONS (3)
  - HYPOTENSION [None]
  - DERMATITIS ALLERGIC [None]
  - DRUG HYPERSENSITIVITY [None]
